FAERS Safety Report 26145744 (Version 1)
Quarter: 2025Q4

REPORT INFORMATION
  Report Type: Spontaneous
  Country: US (occurrence: US)
  Receive Date: 20251211
  Receipt Date: 20251211
  Transmission Date: 20260117
  Serious: No
  Sender: BAYER HEALTHCARE PHARMACEUTICALS INC.
  Company Number: US-BAYER-2025A162702

PATIENT
  Sex: Female

DRUGS (2)
  1. MIRENA [Suspect]
     Active Substance: LEVONORGESTREL
     Indication: Intrauterine contraception
     Dosage: 20?G/DAY
     Route: 015
     Dates: start: 202111
  2. BIMZELX [Concomitant]
     Active Substance: BIMEKIZUMAB-BKZX
     Dosage: UNK

REACTIONS (4)
  - Skin weeping [None]
  - Scab [None]
  - Skin erosion [None]
  - Skin discolouration [None]
